FAERS Safety Report 7410300-9 (Version None)
Quarter: 2011Q2

REPORT INFORMATION
  Report Type: 
  Country: None (occurrence: None)
  Receive Date: 20110412
  Receipt Date: 20110404
  Transmission Date: 20111010
  Serious: Yes (Hospitalization)
  Sender: FDA-Public Use
  Company Number: CA-MEDIMMUNE-MEDI-0013056

PATIENT
  Sex: Female
  Weight: 10.9 kg

DRUGS (4)
  1. LANSOPRAZOLE [Concomitant]
     Route: 048
  2. PROPRANOLOL HYDROCHLORIDE [Concomitant]
     Route: 048
  3. BACTRIM [Concomitant]
     Route: 048
  4. SYNAGIS [Suspect]
     Indication: HEART DISEASE CONGENITAL
     Route: 030
     Dates: start: 20101115, end: 20101115

REACTIONS (3)
  - INCREASED UPPER AIRWAY SECRETION [None]
  - PYREXIA [None]
  - TRACHEITIS [None]
